FAERS Safety Report 24071775 (Version 2)
Quarter: 2024Q3

REPORT INFORMATION
  Report Type: Spontaneous
  Country: US (occurrence: US)
  Receive Date: 20240710
  Receipt Date: 20240710
  Transmission Date: 20241016
  Serious: No
  Sender: ROCHE
  Company Number: US-ROCHE-3505348

PATIENT
  Age: 45 Year
  Sex: Female
  Weight: 34.02 kg

DRUGS (1)
  1. EVRYSDI [Suspect]
     Active Substance: RISDIPLAM
     Indication: Spinal muscular atrophy
     Dosage: 6.6 ML
     Route: 048
     Dates: start: 20210427

REACTIONS (4)
  - Muscular weakness [Unknown]
  - Asthenia [Recovered/Resolved]
  - Asthenia [Unknown]
  - Product preparation error [Unknown]

NARRATIVE: CASE EVENT DATE: 20240114
